FAERS Safety Report 9020514 (Version 1)
Quarter: 2013Q1

REPORT INFORMATION
  Report Type: Spontaneous
  Country: US (occurrence: US)
  Receive Date: 20130119
  Receipt Date: 20130119
  Transmission Date: 20140127
  Serious: No
  Sender: FDA-Public Use
  Company Number: US-ALLERGAN-1207741US

PATIENT
  Age: 65 Year
  Sex: Female

DRUGS (6)
  1. BOTOX COSMETIC [Suspect]
     Indication: SKIN WRINKLING
     Dosage: UNK
     Route: 030
     Dates: start: 20120524, end: 20120524
  2. INDERAL [Concomitant]
     Indication: MIGRAINE
     Dosage: UNK
     Route: 048
  3. CRESTOR                            /01588601/ [Concomitant]
     Indication: BLOOD CHOLESTEROL INCREASED
     Dosage: UNK
     Route: 048
  4. FLUOXETINE [Concomitant]
     Indication: ANXIETY
     Dosage: 10 MG, QD
     Route: 048
  5. OTC GASTRIC REFLUX MEDICATION [Concomitant]
     Indication: GASTROOESOPHAGEAL REFLUX DISEASE
     Dosage: UNK
     Route: 048
  6. OTC ARTHRITIS MEDICATION [Concomitant]
     Indication: PAIN
     Dosage: UNK
     Route: 048

REACTIONS (5)
  - Speech disorder [Unknown]
  - Facial paresis [Unknown]
  - Facial paresis [Unknown]
  - Facial paresis [Unknown]
  - Neck pain [Unknown]
